FAERS Safety Report 20801355 (Version 17)
Quarter: 2022Q3

REPORT INFORMATION
  Report Type: Spontaneous
  Country: PT (occurrence: PT)
  Receive Date: 20220509
  Receipt Date: 20220822
  Transmission Date: 20221027
  Serious: Yes (Life-Threatening, Hospitalization, Other)
  Sender: FDA-Public Use
  Company Number: PT-MYLANLABS-2022M1033537

PATIENT
  Age: 21 Year
  Sex: Female

DRUGS (23)
  1. IBUPROFEN [Suspect]
     Active Substance: IBUPROFEN
     Indication: Abdominal pain upper
     Dosage: UNK, HIGH DOSE
     Route: 048
  2. IBUPROFEN [Suspect]
     Active Substance: IBUPROFEN
     Indication: Abdominal pain
     Dosage: HIGH DOSE
     Route: 065
  3. IBUPROFEN [Suspect]
     Active Substance: IBUPROFEN
     Indication: Pyrexia
  4. IBUPROFEN [Suspect]
     Active Substance: IBUPROFEN
     Indication: Vomiting
  5. IBUPROFEN [Suspect]
     Active Substance: IBUPROFEN
     Indication: Abdominal pain upper
  6. ONDANSETRON [Suspect]
     Active Substance: ONDANSETRON
     Indication: Haematemesis
     Dosage: UNK
     Route: 065
  7. PANTOPRAZOLE [Suspect]
     Active Substance: PANTOPRAZOLE
     Indication: Haematemesis
     Dosage: UNK
     Route: 065
  8. METAMIZOLE [Suspect]
     Active Substance: METAMIZOLE
     Indication: Pyrexia
     Dosage: EXCEEDED THE RECOMMENDED DOSE
     Route: 048
  9. METAMIZOLE [Suspect]
     Active Substance: METAMIZOLE
     Indication: Abdominal pain upper
     Dosage: UNK
     Route: 065
  10. METAMIZOLE [Suspect]
     Active Substance: METAMIZOLE
     Indication: Vomiting
  11. METAMIZOLE SODIUM [Suspect]
     Active Substance: METAMIZOLE SODIUM
     Indication: Abdominal pain upper
     Dosage: UNK
     Route: 065
  12. METAMIZOLE SODIUM [Suspect]
     Active Substance: METAMIZOLE SODIUM
     Indication: Pyrexia
  13. METAMIZOLE SODIUM [Suspect]
     Active Substance: METAMIZOLE SODIUM
     Indication: Abdominal pain
  14. METAMIZOLE SODIUM [Suspect]
     Active Substance: METAMIZOLE SODIUM
     Indication: Vomiting
  15. DESLORATADINE [Suspect]
     Active Substance: DESLORATADINE
     Indication: Pyrexia
     Dosage: EXCEEDED THE RECOMMENDED DOSE
     Route: 048
  16. DESLORATADINE [Suspect]
     Active Substance: DESLORATADINE
     Indication: Abdominal pain upper
     Dosage: UNK
     Route: 065
  17. DESLORATADINE [Suspect]
     Active Substance: DESLORATADINE
     Indication: Vomiting
  18. DESLORATADINE [Suspect]
     Active Substance: DESLORATADINE
     Indication: Product used for unknown indication
  19. ONDANSETRON [Concomitant]
     Active Substance: ONDANSETRON
     Indication: Haematemesis
     Dosage: UNK
     Route: 065
  20. DESLORATADINE [Concomitant]
     Active Substance: DESLORATADINE
     Indication: Abdominal pain upper
     Dosage: UNK
     Route: 065
  21. DESLORATADINE [Concomitant]
     Active Substance: DESLORATADINE
     Indication: Vomiting
     Route: 065
  22. DESLORATADINE [Concomitant]
     Active Substance: DESLORATADINE
     Indication: Pyrexia
  23. DESLORATADINE [Concomitant]
     Active Substance: DESLORATADINE
     Indication: Pyrexia

REACTIONS (17)
  - Shock haemorrhagic [Recovered/Resolved]
  - Haematemesis [Recovered/Resolved]
  - Gastrointestinal haemorrhage [Recovered/Resolved]
  - Gastric disorder [Recovered/Resolved]
  - Intentional product misuse [Unknown]
  - Overdose [Unknown]
  - Haemorrhagic erosive gastritis [Recovered/Resolved]
  - Intentional product use issue [Unknown]
  - Gastric ulcer [Recovered/Resolved]
  - Haemorrhage [Recovered/Resolved]
  - Prescription drug used without a prescription [Unknown]
  - Self-medication [Unknown]
  - Gastrointestinal erosion [Recovered/Resolved]
  - Gastritis erosive [Unknown]
  - Gastritis haemorrhagic [Unknown]
  - Gastric haemorrhage [Recovering/Resolving]
  - Off label use [Unknown]
